FAERS Safety Report 13359690 (Version 3)
Quarter: 2017Q2

REPORT INFORMATION
  Report Type: Report from Study
  Country: US (occurrence: US)
  Receive Date: 20170322
  Receipt Date: 20170424
  Transmission Date: 20170830
  Serious: Yes (Hospitalization, Other)
  Sender: FDA-Public Use
  Company Number: US-AMGEN-USASP2017038757

PATIENT
  Age: 57 Year
  Sex: Female
  Weight: 77.19 kg

DRUGS (1)
  1. REPATHA [Suspect]
     Active Substance: EVOLOCUMAB
     Indication: TYPE IIA HYPERLIPIDAEMIA
     Dosage: 140 MG, UNK
     Route: 065
     Dates: start: 2016

REACTIONS (16)
  - Injection site mass [Recovered/Resolved]
  - Headache [Unknown]
  - Accelerated hypertension [Unknown]
  - Wrong technique in product usage process [Unknown]
  - Hypertension [Unknown]
  - Haematoma [Unknown]
  - Malaise [Unknown]
  - Injection site bruising [Unknown]
  - Injection site swelling [Unknown]
  - Bradycardia [Unknown]
  - Lethargy [Unknown]
  - Feeling abnormal [Unknown]
  - Fatigue [Unknown]
  - Incorrect product storage [Unknown]
  - Injection site pain [Recovered/Resolved]
  - Conjunctival haemorrhage [Unknown]

NARRATIVE: CASE EVENT DATE: 2016
